FAERS Safety Report 10748297 (Version 1)
Quarter: 2015Q1

REPORT INFORMATION
  Report Type: Spontaneous
  Country: US (occurrence: US)
  Receive Date: 20150129
  Receipt Date: 20150129
  Transmission Date: 20150721
  Serious: No
  Sender: FDA-Public Use
  Company Number: US-ROXANE LABORATORIES, INC.-2015-RO-00161RO

PATIENT
  Age: 57 Year
  Sex: Female

DRUGS (2)
  1. ASTELIN [Concomitant]
     Active Substance: AZELASTINE HYDROCHLORIDE
     Indication: MULTIPLE ALLERGIES
     Route: 065
  2. IPRATROPIUM BROMIDE NASAL SOLUTION, 0.03% [Suspect]
     Active Substance: IPRATROPIUM BROMIDE
     Indication: MULTIPLE ALLERGIES
     Route: 045
     Dates: start: 201501

REACTIONS (1)
  - Candida infection [Not Recovered/Not Resolved]

NARRATIVE: CASE EVENT DATE: 201501
